FAERS Safety Report 6251521-0 (Version None)
Quarter: 2009Q2

REPORT INFORMATION
  Report Type: 
  Country: None (occurrence: None)
  Receive Date: 20090626
  Receipt Date: 20090626
  Transmission Date: 20091009
  Serious: Yes (Other)
  Sender: FDA-Public Use
  Company Number: None

PATIENT
  Age: 61 Year
  Sex: Female
  Weight: 68.0396 kg

DRUGS (1)
  1. ZICAM NO-DRIP LIQUID NASAL GEL ZICAM [Suspect]
     Indication: NASOPHARYNGITIS
     Dosage: ONE PUMP IN EACH NOSTRIL EVERY FOUR HOURS NASAL
     Route: 045
     Dates: start: 20080117, end: 20080120

REACTIONS (2)
  - AGEUSIA [None]
  - ANOSMIA [None]
